FAERS Safety Report 5110038-7 (Version None)
Quarter: 2006Q3

REPORT INFORMATION
  Report Type: 
  Country: None (occurrence: None)
  Receive Date: 20060731
  Receipt Date: 20060403
  Transmission Date: 20061208
  Serious: No
  Sender: FDA-Public Use
  Company Number: 2006PV011419

PATIENT
  Age: 67 Year
  Sex: Male
  Weight: 121.564 kg

DRUGS (4)
  1. BYETTA [Suspect]
     Indication: DIABETES MELLITUS NON-INSULIN-DEPENDENT
     Dosage: 5 MCG;BID;SC
     Route: 058
     Dates: start: 20060330
  2. GLUCOPHAGE [Concomitant]
  3. GLYBURIDE [Concomitant]
  4. NOVOLIN [Concomitant]

REACTIONS (1)
  - BLOOD GLUCOSE INCREASED [None]
